FAERS Safety Report 13078601 (Version 24)
Quarter: 2020Q3

REPORT INFORMATION
  Report Type: Report from Study
  Country: JP (occurrence: JP)
  Receive Date: 20170102
  Receipt Date: 20200811
  Transmission Date: 20201102
  Serious: Yes (Life-Threatening, Hospitalization, Disabling, Other)
  Sender: FDA-Public Use
  Company Number: JP-BRISTOL-MYERS SQUIBB COMPANY-BMS-2016-107984

PATIENT
  Age: 63 Year
  Sex: Female
  Weight: 50 kg

DRUGS (16)
  1. BAKTAR [Concomitant]
     Active Substance: SULFAMETHOXAZOLE\TRIMETHOPRIM
     Indication: PROPHYLAXIS
     Dosage: 1 TAB, QD
     Route: 048
     Dates: start: 20161124
  2. IPILIMUMAB [Suspect]
     Active Substance: IPILIMUMAB
     Dosage: 123 MG, UNK
     Route: 041
     Dates: start: 20170110, end: 20170110
  3. CARBOPLATIN. [Suspect]
     Active Substance: CARBOPLATIN
     Indication: PRODUCT USED FOR UNKNOWN INDICATION
     Dosage: 548 MG, UNK
     Route: 065
     Dates: start: 20170323
  4. PACLITAXEL. [Suspect]
     Active Substance: PACLITAXEL
     Indication: PRODUCT USED FOR UNKNOWN INDICATION
     Dosage: 241 MG, UNK
     Route: 065
     Dates: start: 20170323
  5. PREDONINE [Concomitant]
     Active Substance: PREDNISOLONE
     Indication: PROPHYLAXIS
     Dosage: 6 TAB, QD
     Route: 048
     Dates: start: 20161124
  6. TETRAMIDE [Concomitant]
     Active Substance: MIANSERIN
     Indication: INSOMNIA
     Dosage: 1 DF, INTERMITTENT
     Route: 048
     Dates: start: 20161205
  7. OPDIVO [Suspect]
     Active Substance: NIVOLUMAB
     Indication: MALIGNANT MELANOMA STAGE IV
     Dosage: UNK
     Route: 042
     Dates: start: 20160721, end: 20161110
  8. IPILIMUMAB [Suspect]
     Active Substance: IPILIMUMAB
     Indication: MALIGNANT MELANOMA STAGE IV
     Dosage: 138 MG, UNK
     Route: 041
     Dates: start: 20161124, end: 20161124
  9. IPILIMUMAB [Suspect]
     Active Substance: IPILIMUMAB
     Dosage: 123 MG, UNK
     Route: 041
     Dates: start: 20170202, end: 20170202
  10. MYSLEE [Concomitant]
     Active Substance: ZOLPIDEM TARTRATE
     Indication: INSOMNIA
     Dosage: 1 DF, QD
     Route: 048
     Dates: start: 20161129
  11. CORTRIL                            /00028604/ [Concomitant]
     Indication: PROPHYLAXIS
     Dosage: 4 TAB, UNK
     Route: 065
     Dates: start: 20170201, end: 20170218
  12. NITRAZEPAM [Concomitant]
     Active Substance: NITRAZEPAM
     Indication: PROPHYLAXIS
     Dosage: 1 TAB, QD
     Route: 048
     Dates: start: 20161211, end: 20161229
  13. IPILIMUMAB [Suspect]
     Active Substance: IPILIMUMAB
     Dosage: 138 MG, UNK
     Route: 041
     Dates: start: 20161215, end: 20161215
  14. BROTIZOLAM [Concomitant]
     Active Substance: BROTIZOLAM
     Indication: INSOMNIA
     Dosage: 1 TAB, QD
     Route: 048
     Dates: start: 20161202, end: 20161229
  15. NEXIUM [Concomitant]
     Active Substance: ESOMEPRAZOLE MAGNESIUM
     Indication: PROPHYLAXIS
     Dosage: 1 TAB, QD
     Route: 048
     Dates: start: 20161202
  16. TRAZODONE HYDROCHLORIDE. [Concomitant]
     Active Substance: TRAZODONE HYDROCHLORIDE
     Indication: PROPHYLAXIS
     Dosage: 1 TAB, QD
     Route: 048
     Dates: start: 20161204, end: 20161229

REACTIONS (11)
  - Blood pressure decreased [Recovered/Resolved]
  - Neuropathy peripheral [Recovering/Resolving]
  - Hepatic function abnormal [Recovering/Resolving]
  - Lymphocyte count decreased [Recovering/Resolving]
  - Rash [Recovering/Resolving]
  - Hypopituitarism [Recovering/Resolving]
  - Blood sodium decreased [Recovered/Resolved]
  - Adrenal insufficiency [Recovering/Resolving]
  - Loss of consciousness [Recovering/Resolving]
  - Pyrexia [Recovering/Resolving]
  - Blood lactate dehydrogenase increased [Recovering/Resolving]

NARRATIVE: CASE EVENT DATE: 20161205
